FAERS Safety Report 7017648-0 (Version None)
Quarter: 2010Q3

REPORT INFORMATION
  Report Type: 
  Country: None (occurrence: None)
  Receive Date: 20100928
  Receipt Date: 20100917
  Transmission Date: 20110219
  Serious: Yes (Other)
  Sender: FDA-Public Use
  Company Number: US-PFIZER INC-2010118136

PATIENT
  Age: 80 Year
  Sex: Male

DRUGS (3)
  1. VIAGRA [Suspect]
     Indication: SEXUAL DYSFUNCTION
     Dosage: 100 MG, AS NEEDED
     Route: 048
  2. CYCLOSPORINE [Suspect]
     Indication: DRY EYE
     Dosage: 1 GTT, 2X/DAY
     Route: 047
     Dates: start: 20090101
  3. VESICARE [Suspect]
     Dosage: UNK
     Route: 048
     Dates: start: 20100101

REACTIONS (2)
  - BLINDNESS TRANSIENT [None]
  - VISION BLURRED [None]
